FAERS Safety Report 5565818-0 (Version None)
Quarter: 2007Q4

REPORT INFORMATION
  Report Type: 
  Country: None (occurrence: None)
  Receive Date: 20071213
  Receipt Date: 20071203
  Transmission Date: 20080405
  Serious: Yes (Hospitalization)
  Sender: FDA-Public Use
  Company Number: JPI-P-002576

PATIENT
  Age: 55 Year
  Sex: Female
  Weight: 56.6996 kg

DRUGS (24)
  1. XYREM [Suspect]
     Indication: FIBROMYALGIA
     Dosage: SEE IMAGE
     Route: 048
     Dates: end: 20071101
  2. XYREM [Suspect]
     Indication: FIBROMYALGIA
     Dosage: SEE IMAGE
     Route: 048
     Dates: start: 20071129, end: 20071201
  3. XYREM [Suspect]
     Indication: FIBROMYALGIA
     Dosage: SEE IMAGE
     Route: 048
     Dates: start: 20060101
  4. XYREM [Suspect]
     Indication: FIBROMYALGIA
     Dosage: SEE IMAGE
     Route: 048
     Dates: start: 20060201
  5. XYREM [Suspect]
     Indication: FIBROMYALGIA
     Dosage: SEE IMAGE
     Route: 048
     Dates: start: 20071202
  6. XYREM [Suspect]
     Indication: FIBROMYALGIA
     Dosage: SEE IMAGE
     Route: 048
     Dates: start: 20071202
  7. TINCTURES WITH VARIOUS HERBAL INGREDIENTS (ALL OTHER NON-THERAPEUTIC P [Concomitant]
  8. FEXOFENADINE HYDROCHLORIDE [Concomitant]
  9. MOMETASONE FUROATE INHALATION POWDER (MOMETASONE FUROATE) [Concomitant]
  10. FAMOTIDINE [Concomitant]
  11. MOMETASONE FUROATE [Concomitant]
  12. NORETHINDRONE ACETATE W/ETHINYL ESTRADIOL (ETHINYL ESTRADIOL W/NORGEST [Concomitant]
  13. POTASSIUM CHLORIDE [Concomitant]
  14. POLYETHYLENE GLYCOL (MACROGOL) [Concomitant]
  15. IRON SOLUTION (IRON PREPARATIONS) [Concomitant]
  16. CALCIUM CITRATE (CALCIUM CITRATE) [Concomitant]
  17. 2-AMINOETHANESULFONIC ACID (AMINO ACIDS NOS) [Concomitant]
  18. QM1 (ALL OTHER NON-THERAPEUTIC PRODUCTS) [Concomitant]
  19. MSM (METHYLSULFONYLMETHANE) [Concomitant]
  20. GLUCOSAMINE (GLUCOSAMINE) [Concomitant]
  21. OMEGA 3 (FISH OIL) [Concomitant]
  22. ASCORBIC ACID [Concomitant]
  23. MAGNESIUM (MAGNESIUM) [Concomitant]
  24. ISOXOPRINE (BETA BLOCKING AGENTS AND VASODILATORS) [Concomitant]

REACTIONS (7)
  - DEPRESSION [None]
  - DISEASE RECURRENCE [None]
  - FIBROMYALGIA [None]
  - GRAND MAL CONVULSION [None]
  - MUSCLE SPASMS [None]
  - MYOCARDIAL INFARCTION [None]
  - PANIC ATTACK [None]
